FAERS Safety Report 21765050 (Version 1)
Quarter: 2022Q4

REPORT INFORMATION
  Report Type: Spontaneous
  Country: US (occurrence: None)
  Receive Date: 20221221
  Receipt Date: 20221221
  Transmission Date: 20230112
  Serious: No
  Sender: FDA-Public Use
  Company Number: None

PATIENT

DRUGS (1)
  1. CARBIDOPA AND LEVODOPA [Suspect]
     Active Substance: CARBIDOPA\LEVODOPA
     Route: 048

REACTIONS (6)
  - Incorrect dose administered [None]
  - Product dispensing error [None]
  - Transcription medication error [None]
  - Product communication issue [None]
  - Wrong dose [None]
  - Product dispensing error [None]
